FAERS Safety Report 6361318-9 (Version None)
Quarter: 2009Q3

REPORT INFORMATION
  Report Type: 
  Country: None (occurrence: None)
  Receive Date: 20090918
  Receipt Date: 20090914
  Transmission Date: 20100115
  Serious: Yes (Other)
  Sender: FDA-Public Use
  Company Number: A0796389A

PATIENT
  Age: 61 Year
  Sex: Female
  Weight: 54.5 kg

DRUGS (5)
  1. ADVAIR HFA [Suspect]
     Indication: ASTHMA
     Dosage: 1PUFF TWICE PER DAY
     Route: 055
     Dates: start: 20090709
  2. SINGULAIR [Concomitant]
  3. NASACORT [Concomitant]
     Route: 045
  4. FEXOFENADINE [Concomitant]
  5. ALBUTEROL [Concomitant]

REACTIONS (5)
  - ASTHMA [None]
  - COUGH [None]
  - DYSPHONIA [None]
  - PEAK EXPIRATORY FLOW RATE DECREASED [None]
  - PRODUCT QUALITY ISSUE [None]
